FAERS Safety Report 11926256 (Version 7)
Quarter: 2016Q2

REPORT INFORMATION
  Report Type: Report from Study
  Country: CA (occurrence: CA)
  Receive Date: 20160119
  Receipt Date: 20160610
  Transmission Date: 20160815
  Serious: Yes (Other)
  Sender: FDA-Public Use
  Company Number: CA-ROCHE-1648160

PATIENT
  Age: 41 Year
  Sex: Female

DRUGS (13)
  1. CODEINE CONTIN [Concomitant]
     Active Substance: CODEINE SULFATE
  2. AMLODIPINE [Concomitant]
     Active Substance: AMLODIPINE BESYLATE
  3. DIAMICRON [Concomitant]
     Active Substance: GLICLAZIDE
  4. TYLENOL WITH CODEINE [Concomitant]
     Active Substance: ACETAMINOPHEN\CODEINE PHOSPHATE
  5. TRAZODONE [Concomitant]
     Active Substance: TRAZODONE HYDROCHLORIDE
  6. CRESTOR [Concomitant]
     Active Substance: ROSUVASTATIN CALCIUM
  7. GABAPENTIN. [Concomitant]
     Active Substance: GABAPENTIN
  8. FOLIC ACID. [Concomitant]
     Active Substance: FOLIC ACID
  9. METFORMIN HYDROCHLORIDE. [Concomitant]
     Active Substance: METFORMIN HYDROCHLORIDE
  10. ACTEMRA [Suspect]
     Active Substance: TOCILIZUMAB
     Indication: RHEUMATOID ARTHRITIS
     Route: 042
     Dates: start: 20150821, end: 20160503
  11. RAMIPRIL. [Concomitant]
     Active Substance: RAMIPRIL
  12. PROPRANOLOL [Concomitant]
     Active Substance: PROPRANOLOL\PROPRANOLOL HYDROCHLORIDE
  13. CIPRALEX [Concomitant]
     Active Substance: ESCITALOPRAM OXALATE

REACTIONS (11)
  - Blood pressure increased [Unknown]
  - Blood pressure increased [Unknown]
  - Blood pressure diastolic decreased [Unknown]
  - Scan lymph nodes [Unknown]
  - Hyperhidrosis [Unknown]
  - Contusion [Not Recovered/Not Resolved]
  - Dry skin [Recovered/Resolved]
  - Body temperature increased [Unknown]
  - Impaired healing [Unknown]
  - Drug ineffective [Unknown]
  - Blood pressure systolic increased [Unknown]

NARRATIVE: CASE EVENT DATE: 201510
